FAERS Safety Report 9012136 (Version 1)
Quarter: 2013Q1

REPORT INFORMATION
  Report Type: Spontaneous
  Country: US (occurrence: US)
  Receive Date: 20130114
  Receipt Date: 20130114
  Transmission Date: 20140127
  Serious: No
  Sender: FDA-Public Use
  Company Number: US-PFIZER INC-2013013453

PATIENT
  Age: 48 Year
  Sex: Female
  Weight: 68 kg

DRUGS (9)
  1. CHANTIX [Suspect]
     Indication: SMOKING CESSATION THERAPY
     Dosage: UNK
     Route: 048
     Dates: start: 201212, end: 20130107
  2. COUMADIN [Concomitant]
     Dosage: UNK
  3. ELAVIL [Concomitant]
     Dosage: 25 MG, UNK
  4. CELEXA [Concomitant]
     Dosage: 20 MG, UNK
  5. PLAQUENIL [Concomitant]
     Dosage: 200 MG, UNK
  6. POTASSIUM [Concomitant]
     Dosage: 10 MEQ, UNK
  7. SALSALATE [Concomitant]
     Dosage: 500 MG, UNK
  8. PRAVACHOL [Concomitant]
     Dosage: 10 MG, UNK
  9. HYDRODIURIL [Concomitant]
     Dosage: 25 MG, UNK

REACTIONS (2)
  - Dizziness [Not Recovered/Not Resolved]
  - Balance disorder [Not Recovered/Not Resolved]
